FAERS Safety Report 5421041-1 (Version None)
Quarter: 2007Q3

REPORT INFORMATION
  Report Type: 
  Country: None (occurrence: None)
  Receive Date: 20070821
  Receipt Date: 20070814
  Transmission Date: 20080115
  Serious: Yes (Other)
  Sender: FDA-Public Use
  Company Number: A0670193A

PATIENT
  Age: 41 Year
  Sex: Female

DRUGS (3)
  1. PAXIL CR [Suspect]
     Indication: POST-TRAUMATIC STRESS DISORDER
     Dosage: 12.5MG PER DAY
     Route: 048
     Dates: start: 20070603
  2. PAROXETINE [Suspect]
     Indication: POST-TRAUMATIC STRESS DISORDER
     Dosage: 12.5MG PER DAY
     Route: 048
     Dates: start: 20070101
  3. NO CONCURRENT MEDICATION [Concomitant]

REACTIONS (13)
  - ABNORMAL BEHAVIOUR [None]
  - CRYING [None]
  - DIARRHOEA [None]
  - DRUG DOSE OMISSION [None]
  - FEELING OF DESPAIR [None]
  - HEADACHE [None]
  - HEART RATE IRREGULAR [None]
  - MIGRAINE [None]
  - PANIC ATTACK [None]
  - PHARMACEUTICAL PRODUCT COMPLAINT [None]
  - SUICIDAL IDEATION [None]
  - TACHYCARDIA [None]
  - VOMITING [None]
